FAERS Safety Report 10083705 (Version 2)
Quarter: 2014Q2

REPORT INFORMATION
  Report Type: Spontaneous
  Country: JP (occurrence: None)
  Receive Date: 20140415
  Receipt Date: 20140429
  Transmission Date: 20141212
  Serious: Yes (Hospitalization)
  Sender: FDA-Public Use
  Company Number: B0982949A

PATIENT
  Age: 82 Year
  Sex: Female

DRUGS (8)
  1. PAROXETINE HYDROCHLORIDE [Suspect]
     Indication: DEPRESSION
     Route: 048
  2. OLANZAPINE [Concomitant]
  3. AKINETON [Concomitant]
  4. RAMELTEON [Concomitant]
  5. NON-GSK PROPRANOLOL HCL [Concomitant]
  6. PURSENNID [Concomitant]
  7. CANDESARTAN CILEXETIL [Concomitant]
  8. MAGNESIUM OXIDE [Concomitant]

REACTIONS (6)
  - Altered state of consciousness [None]
  - Hyponatraemia [None]
  - Inappropriate antidiuretic hormone secretion [None]
  - Pneumonia [None]
  - Inflammation [None]
  - Dizziness [None]
